FAERS Safety Report 8786494 (Version 2)
Quarter: 2013Q2

REPORT INFORMATION
  Report Type: Report from Study
  Country: BR (occurrence: BR)
  Receive Date: 20120914
  Receipt Date: 20130426
  Transmission Date: 20140414
  Serious: Yes (Other)
  Sender: FDA-Public Use
  Company Number: PHHY2012BR079686

PATIENT
  Sex: Female

DRUGS (1)
  1. DIOVAN AMLO FIX [Suspect]
     Indication: HYPERTENSION
     Dosage: 1 DF,(320 MG VALS/ 5 MG AMLO )DAILY QD

REACTIONS (5)
  - Intervertebral disc protrusion [Not Recovered/Not Resolved]
  - Hypertension [Not Recovered/Not Resolved]
  - Depression [Not Recovered/Not Resolved]
  - Nervousness [Not Recovered/Not Resolved]
  - Emotional disorder [Not Recovered/Not Resolved]
